FAERS Safety Report 11298559 (Version 1)
Quarter: 2015Q3

REPORT INFORMATION
  Report Type: Spontaneous
  Country: US (occurrence: US)
  Receive Date: 20150722
  Receipt Date: 20150722
  Transmission Date: 20151125
  Serious: Yes (Other)
  Sender: FDA-Public Use
  Company Number: US-ELI_LILLY_AND_COMPANY-US201111001768

PATIENT
  Sex: Female
  Weight: 72.56 kg

DRUGS (4)
  1. THYROID HORMONES [Concomitant]
     Active Substance: UNSPECIFIED INGREDIENT
  2. HUMATROPE [Suspect]
     Active Substance: SOMATROPIN
     Indication: DWARFISM
     Dosage: 0.2 MG, UNKNOWN
  3. GENOTROPIN MINIQUI [Concomitant]
     Indication: DWARFISM
     Dosage: 0.4 MG, UNKNOWN
     Dates: start: 20111015
  4. OMNITROPE [Concomitant]
     Active Substance: SOMATROPIN
     Indication: DWARFISM
     Dosage: 0.2 MG, UNKNOWN
     Dates: start: 201105, end: 201110

REACTIONS (2)
  - Anxiety [Not Recovered/Not Resolved]
  - Hypersensitivity [Recovered/Resolved]
